FAERS Safety Report 16379164 (Version 1)
Quarter: 2019Q2

REPORT INFORMATION
  Report Type: Spontaneous
  Country: DE (occurrence: DE)
  Receive Date: 20190531
  Receipt Date: 20190531
  Transmission Date: 20190711
  Serious: Yes (Hospitalization)
  Sender: FDA-Public Use
  Company Number: DE-009507513-1905DEU009894

PATIENT
  Age: 73 Year
  Sex: Female

DRUGS (22)
  1. ZYPREXA [Interacting]
     Active Substance: OLANZAPINE
     Dates: start: 20061114, end: 20061205
  2. MOVICOL [Concomitant]
     Active Substance: POLYETHYLENE GLYCOL 3350\POTASSIUM CHLORIDE\SODIUM BICARBONATE\SODIUM CHLORIDE
  3. KALINOR [Concomitant]
  4. HALDOL [Concomitant]
     Active Substance: HALOPERIDOL
     Dosage: 7.5 MILLIGRAM, QD
     Dates: start: 20061207, end: 20061207
  5. EUNERPAN [Interacting]
     Active Substance: MELPERONE HYDROCHLORIDE
     Dosage: 125 MILLIGRAM, QD
     Dates: start: 20061205
  6. DIAZEPAM. [Concomitant]
     Active Substance: DIAZEPAM
     Dosage: 2 MILLIGRAM, QD
     Dates: start: 20061120, end: 20061121
  7. REMERGIL [Suspect]
     Active Substance: MIRTAZAPINE
  8. VENLAFAXINE HYDROCHLORIDE. [Interacting]
     Active Substance: VENLAFAXINE HYDROCHLORIDE
     Dosage: 300 MILLIGRAM, QD
     Dates: start: 20061123, end: 20061205
  9. CONCOR [Concomitant]
     Active Substance: BISOPROLOL FUMARATE
  10. ASS 100 [Concomitant]
     Active Substance: ASPIRIN
  11. HALDOL [Concomitant]
     Active Substance: HALOPERIDOL
     Dates: start: 20061206
  12. HALDOL [Concomitant]
     Active Substance: HALOPERIDOL
     Dosage: 7.5 MILLIGRAM, QD
     Dates: start: 20061205
  13. DIAZEPAM. [Concomitant]
     Active Substance: DIAZEPAM
     Dosage: 1 MILLIGRAM, QD
     Dates: start: 20061122, end: 20061126
  14. FOLSAN [Concomitant]
     Active Substance: FOLIC ACID
  15. VENLAFAXINE HYDROCHLORIDE. [Interacting]
     Active Substance: VENLAFAXINE HYDROCHLORIDE
     Dosage: 225 MILLIGRAM, QD
     Dates: start: 20061116, end: 20061122
  16. VENLAFAXINE HYDROCHLORIDE. [Interacting]
     Active Substance: VENLAFAXINE HYDROCHLORIDE
     Dosage: 75 MILLIGRAM, QD
     Dates: start: 20061109, end: 20061113
  17. HALDOL [Concomitant]
     Active Substance: HALOPERIDOL
     Dosage: 5 MILLIGRAM, QD
     Dates: start: 20061210, end: 20061217
  18. DIAZEPAM. [Concomitant]
     Active Substance: DIAZEPAM
     Dosage: 5 MILLIGRAM, QD
     Dates: start: 20061102, end: 20061114
  19. VENLAFAXINE HYDROCHLORIDE. [Interacting]
     Active Substance: VENLAFAXINE HYDROCHLORIDE
     Dosage: 150 MILLIGRAM, QD
     Dates: start: 20061114, end: 20061115
  20. EUNERPAN [Interacting]
     Active Substance: MELPERONE HYDROCHLORIDE
     Dosage: 100 MILLIGRAM, QD
     Dates: start: 20061121, end: 20061204
  21. PANTOZOL [Concomitant]
     Active Substance: PANTOPRAZOLE SODIUM
  22. DIAZEPAM. [Concomitant]
     Active Substance: DIAZEPAM
     Dosage: 4 MILLIGRAM, QD
     Dates: start: 20061115, end: 20061119

REACTIONS (5)
  - Confusional state [Recovered/Resolved]
  - Hallucination, visual [Recovered/Resolved]
  - Disorientation [Recovered/Resolved]
  - Brief psychotic disorder with marked stressors [Recovered/Resolved]
  - Psychomotor hyperactivity [Recovered/Resolved]

NARRATIVE: CASE EVENT DATE: 20061205
